FAERS Safety Report 8154464-0 (Version None)
Quarter: 2012Q1

REPORT INFORMATION
  Report Type: 
  Country: None (occurrence: None)
  Receive Date: 20120221
  Receipt Date: 20120208
  Transmission Date: 20120608
  Serious: Yes (Hospitalization)
  Sender: FDA-Public Use
  Company Number: US-UCBSA-051341

PATIENT
  Age: 74 Year
  Sex: Female
  Weight: 75.7 kg

DRUGS (15)
  1. CLONIDINE [Concomitant]
     Indication: HYPERTENSION
     Dates: start: 20061026
  2. ELAVIL [Concomitant]
     Indication: DEPRESSION
     Dates: start: 20080629
  3. ASPIRIN [Concomitant]
     Indication: CARDIOVASCULAR EVENT PROPHYLAXIS
     Dates: start: 20070412
  4. CARDIZEM [Concomitant]
     Indication: HYPERTENSION
     Dates: start: 20061026
  5. PRILOSEC OTC [Concomitant]
     Indication: GASTROOESOPHAGEAL REFLUX DISEASE
     Dates: start: 20070101
  6. ZOCOR [Concomitant]
     Indication: HYPERLIPIDAEMIA
     Dates: start: 20061026
  7. CERTOLIZUMAB PEGOL [Suspect]
     Indication: RHEUMATOID ARTHRITIS
     Route: 058
     Dates: start: 20110615
  8. CALCIUM CARBONATE [Concomitant]
     Indication: MINERAL SUPPLEMENTATION
     Dates: start: 20070412
  9. FOLIC ACID [Concomitant]
     Indication: RHEUMATOID ARTHRITIS
     Dates: start: 20061026
  10. METHOTREXATE [Concomitant]
     Indication: RHEUMATOID ARTHRITIS
     Dosage: 2.5 MG X 6
     Dates: start: 20061026
  11. COLON HEALTH [Concomitant]
     Indication: CONSTIPATION
     Dates: start: 20111001
  12. DUONEB [Concomitant]
     Indication: ASTHMA
     Dosage: 1 PUFF AS NEEDED
     Dates: start: 20070401
  13. BUPROPION HCL [Concomitant]
     Indication: DEPRESSION
     Dates: start: 20110629
  14. ALPRAZOLAM [Concomitant]
     Indication: DEPRESSION
     Dates: start: 20070412
  15. BUPROPION HCL [Concomitant]
     Dates: start: 20080629, end: 20110629

REACTIONS (2)
  - PNEUMONIA [None]
  - BACTERIAL INFECTION [None]
